FAERS Safety Report 13725369 (Version 1)
Quarter: 2017Q3

REPORT INFORMATION
  Report Type: Spontaneous
  Country: ZA (occurrence: US)
  Receive Date: 20170706
  Receipt Date: 20170706
  Transmission Date: 20171127
  Serious: Yes (Other)
  Sender: FDA-Public Use
  Company Number: None

PATIENT
  Age: 54 Year
  Sex: Female
  Weight: 55 kg

DRUGS (2)
  1. TAVALOXX 500 TABLETS [Suspect]
     Active Substance: LEVOFLOXACIN
     Indication: ASTHMA
     Dosage: ?          OTHER STRENGTH:MG/MG;QUANTITY:5 TABLET(S);?
     Route: 048
  2. MULTI VITAMIN [Concomitant]
     Active Substance: VITAMINS

REACTIONS (5)
  - Neck pain [None]
  - Arthralgia [None]
  - Back pain [None]
  - Myalgia [None]
  - Headache [None]

NARRATIVE: CASE EVENT DATE: 20170703
